FAERS Safety Report 22131508 (Version 2)
Quarter: 2023Q2

REPORT INFORMATION
  Report Type: Spontaneous
  Country: US (occurrence: US)
  Receive Date: 20230323
  Receipt Date: 20230601
  Transmission Date: 20230721
  Serious: No
  Sender: FDA-Public Use
  Company Number: US-ALLERGAN-2304929US

PATIENT
  Age: 65 Year
  Sex: Female
  Weight: 89.811 kg

DRUGS (2)
  1. LASTACAFT [Suspect]
     Active Substance: ALCAFTADINE
     Indication: Eye pruritus
     Dosage: UNK
     Route: 047
     Dates: start: 20230220, end: 20230220
  2. LASTACAFT [Suspect]
     Active Substance: ALCAFTADINE
     Dosage: 2 GTT
     Route: 047

REACTIONS (8)
  - Infection [Unknown]
  - Multiple allergies [Unknown]
  - Lacrimation increased [Recovering/Resolving]
  - Ocular hyperaemia [Recovered/Resolved]
  - Eye pruritus [Not Recovered/Not Resolved]
  - Product quality issue [Unknown]
  - Therapeutic response decreased [Unknown]
  - Drug ineffective [Unknown]

NARRATIVE: CASE EVENT DATE: 20221229
